FAERS Safety Report 4608526-2 (Version None)
Quarter: 2005Q1

REPORT INFORMATION
  Report Type: 
  Country: None (occurrence: None)
  Receive Date: 20050311
  Receipt Date: 20050311
  Transmission Date: 20050727
  Serious: Yes (Hospitalization)
  Sender: FDA-Public Use
  Company Number: None

PATIENT
  Age: 85 Year
  Sex: Male
  Weight: 77.1115 kg

DRUGS (2)
  1. TEMOZOLOMIDE [Suspect]
     Indication: MALIGNANT MELANOMA
     Dosage: 140MG  QD X 14 DAYS  ORAL
     Route: 048
     Dates: start: 20050217, end: 20050228
  2. HYDROCHLOROTHIAZIDE [Suspect]
     Indication: HYPERTENSION
     Dosage: 25 MG  QD ORAL
     Route: 048
     Dates: start: 20041207, end: 20050228

REACTIONS (5)
  - MICTURITION URGENCY [None]
  - ORAL INTAKE REDUCED [None]
  - POLLAKIURIA [None]
  - RENAL FAILURE ACUTE [None]
  - URINARY INCONTINENCE [None]
